FAERS Safety Report 4524800-2 (Version None)
Quarter: 2004Q4

REPORT INFORMATION
  Report Type: 
  Country: None (occurrence: None)
  Receive Date: 20041213
  Receipt Date: 20041201
  Transmission Date: 20050328
  Serious: Yes (Hospitalization)
  Sender: FDA-Public Use
  Company Number: PHBS2004DE16369

PATIENT
  Age: 43 Year
  Sex: Male

DRUGS (6)
  1. CLOPIDOGREL [Suspect]
     Dosage: 75 MG/DAY
  2. DALTEPARIN SODIUM [Concomitant]
  3. ACETYLSALICYLIC ACID [Concomitant]
  4. MOLSIDOMINE [Concomitant]
  5. METOPROLOL TARTRATE [Suspect]
  6. NITROGLYCERIN [Concomitant]

REACTIONS (12)
  - ANGINA PECTORIS [None]
  - BLOOD BILIRUBIN INCREASED [None]
  - BLOOD CREATININE INCREASED [None]
  - BLOOD LACTATE DEHYDROGENASE INCREASED [None]
  - BLOOD SMEAR TEST ABNORMAL [None]
  - FREE HAEMOGLOBIN PRESENT [None]
  - HAEMOGLOBIN DECREASED [None]
  - HAEMOLYTIC URAEMIC SYNDROME [None]
  - MYOCARDIAL INFARCTION [None]
  - PLASMAPHERESIS [None]
  - PLATELET COUNT DECREASED [None]
  - WHITE BLOOD CELL COUNT INCREASED [None]
